FAERS Safety Report 7247251-9 (Version None)
Quarter: 2011Q1

REPORT INFORMATION
  Report Type: 
  Country: None (occurrence: None)
  Receive Date: 20110127
  Receipt Date: 20101216
  Transmission Date: 20110831
  Serious: No
  Sender: FDA-Public Use
  Company Number: US-BAYER-2010-005360

PATIENT
  Sex: Male
  Weight: 109 kg

DRUGS (6)
  1. NAPROXEN [Suspect]
     Indication: ARTHRITIS
     Dosage: DAILY DOSE 660 MG
     Route: 048
     Dates: start: 20080101, end: 20101101
  2. ALEVE (CAPLET) [Suspect]
     Indication: ARTHRITIS
     Dosage: DAILY DOSE 660 MG
     Route: 048
     Dates: start: 20080101
  3. VITAMIN E [Concomitant]
  4. FLOMAX [Concomitant]
  5. AVODART [Concomitant]
  6. ASPIRIN [Concomitant]
     Dosage: 81 MG, UNK

REACTIONS (5)
  - PEYRONIE'S DISEASE [None]
  - OROPHARYNGEAL PAIN [None]
  - ERECTILE DYSFUNCTION [None]
  - DYSPHAGIA [None]
  - FOREIGN BODY [None]
